FAERS Safety Report 7574151-7 (Version None)
Quarter: 2011Q2

REPORT INFORMATION
  Report Type: 
  Country: None (occurrence: None)
  Receive Date: 20110627
  Receipt Date: 20110616
  Transmission Date: 20111010
  Serious: Yes (Other)
  Sender: FDA-Public Use
  Company Number: PHHY2011FR54594

PATIENT
  Sex: Male

DRUGS (3)
  1. COMTAN [Suspect]
     Indication: PARKINSON'S DISEASE
  2. DOPAMINE HCL [Concomitant]
  3. DOPAMINE AGONISTS [Concomitant]

REACTIONS (1)
  - EXTRAPYRAMIDAL DISORDER [None]
